FAERS Safety Report 25489765 (Version 1)
Quarter: 2025Q2

REPORT INFORMATION
  Report Type: Spontaneous
  Country: CN (occurrence: CN)
  Receive Date: 20250627
  Receipt Date: 20250627
  Transmission Date: 20250717
  Serious: Yes (Hospitalization)
  Sender: BEIGENE
  Company Number: CN-BEIGENE-BGN-2025-010042

PATIENT
  Age: 59 Year
  Weight: 45 kg

DRUGS (32)
  1. TISLELIZUMAB [Suspect]
     Active Substance: TISLELIZUMAB
     Indication: Pancreatic neoplasm
     Route: 041
  2. TISLELIZUMAB [Suspect]
     Active Substance: TISLELIZUMAB
  3. TISLELIZUMAB [Suspect]
     Active Substance: TISLELIZUMAB
  4. TISLELIZUMAB [Suspect]
     Active Substance: TISLELIZUMAB
     Route: 041
  5. TISLELIZUMAB [Suspect]
     Active Substance: TISLELIZUMAB
  6. TISLELIZUMAB [Suspect]
     Active Substance: TISLELIZUMAB
  7. TISLELIZUMAB [Suspect]
     Active Substance: TISLELIZUMAB
     Route: 041
  8. TISLELIZUMAB [Suspect]
     Active Substance: TISLELIZUMAB
     Route: 041
  9. TISLELIZUMAB [Suspect]
     Active Substance: TISLELIZUMAB
  10. TISLELIZUMAB [Suspect]
     Active Substance: TISLELIZUMAB
  11. TISLELIZUMAB [Suspect]
     Active Substance: TISLELIZUMAB
     Route: 041
  12. TISLELIZUMAB [Suspect]
     Active Substance: TISLELIZUMAB
     Route: 041
  13. TISLELIZUMAB [Suspect]
     Active Substance: TISLELIZUMAB
  14. TISLELIZUMAB [Suspect]
     Active Substance: TISLELIZUMAB
  15. TISLELIZUMAB [Suspect]
     Active Substance: TISLELIZUMAB
     Route: 041
  16. TISLELIZUMAB [Suspect]
     Active Substance: TISLELIZUMAB
     Route: 041
  17. TISLELIZUMAB [Suspect]
     Active Substance: TISLELIZUMAB
     Route: 041
  18. TISLELIZUMAB [Suspect]
     Active Substance: TISLELIZUMAB
  19. TISLELIZUMAB [Suspect]
     Active Substance: TISLELIZUMAB
  20. TISLELIZUMAB [Suspect]
     Active Substance: TISLELIZUMAB
     Route: 041
  21. GEMCITABINE [Concomitant]
     Active Substance: GEMCITABINE
     Indication: Pancreatic neoplasm
  22. GEMCITABINE [Concomitant]
     Active Substance: GEMCITABINE
  23. GEMCITABINE [Concomitant]
     Active Substance: GEMCITABINE
  24. GEMCITABINE [Concomitant]
     Active Substance: GEMCITABINE
  25. GEMCITABINE [Concomitant]
     Active Substance: GEMCITABINE
  26. GEMCITABINE [Concomitant]
     Active Substance: GEMCITABINE
  27. XELODA [Concomitant]
     Active Substance: CAPECITABINE
     Indication: Pancreatic neoplasm
  28. XELODA [Concomitant]
     Active Substance: CAPECITABINE
  29. XELODA [Concomitant]
     Active Substance: CAPECITABINE
  30. XELODA [Concomitant]
     Active Substance: CAPECITABINE
  31. XELODA [Concomitant]
     Active Substance: CAPECITABINE
  32. XELODA [Concomitant]
     Active Substance: CAPECITABINE

REACTIONS (1)
  - Enteritis [Recovering/Resolving]
